FAERS Safety Report 8436515-9 (Version None)
Quarter: 2012Q2

REPORT INFORMATION
  Report Type: 
  Country: None (occurrence: None)
  Receive Date: 20120614
  Receipt Date: 20120612
  Transmission Date: 20120825
  Serious: Yes (Other)
  Sender: FDA-Public Use
  Company Number: US-GLAXOSMITHKLINE-A0981042A

PATIENT
  Sex: Female

DRUGS (1)
  1. TYKERB [Suspect]
     Indication: PRODUCT USED FOR UNKNOWN INDICATION
     Dosage: 1000MG PER DAY
     Route: 065
     Dates: start: 20120426, end: 20120612

REACTIONS (5)
  - DECREASED APPETITE [None]
  - WEIGHT DECREASED [None]
  - VISION BLURRED [None]
  - INCOHERENT [None]
  - DEAFNESS [None]
